FAERS Safety Report 4363278-9 (Version None)
Quarter: 2004Q2

REPORT INFORMATION
  Report Type: 
  Country: None (occurrence: None)
  Receive Date: 20040517
  Receipt Date: 20040212
  Transmission Date: 20050107
  Serious: No
  Sender: FDA-Public Use
  Company Number: S04-USA-00816-01

PATIENT
  Age: 83 Year
  Sex: Female

DRUGS (3)
  1. NAMENDA [Suspect]
     Indication: DEMENTIA ALZHEIMER'S TYPE
     Dosage: 15 MG QD PO
     Route: 048
     Dates: start: 20040101
  2. DILANTIN [Concomitant]
  3. SYNTHROID [Concomitant]

REACTIONS (4)
  - CONSTIPATION [None]
  - DECREASED APPETITE [None]
  - DYSKINESIA [None]
  - URINARY RETENTION [None]
